FAERS Safety Report 14014022 (Version 2)
Quarter: 2017Q4

REPORT INFORMATION
  Report Type: Report from Study
  Country: None (occurrence: US)
  Receive Date: 20170926
  Receipt Date: 20171120
  Transmission Date: 20180321
  Serious: Yes (Other)
  Sender: FDA-Public Use
  Company Number: US-ABBVIE-17K-163-2021636-00

PATIENT
  Age: 55 Year
  Sex: Female

DRUGS (2)
  1. HUMIRA [Suspect]
     Active Substance: ADALIMUMAB
     Route: 058
     Dates: start: 20170621
  2. HUMIRA [Suspect]
     Active Substance: ADALIMUMAB
     Indication: PSORIASIS
     Dosage: LOADING DOSE
     Route: 058
     Dates: start: 20170621, end: 20170621

REACTIONS (5)
  - Injection site pain [Recovered/Resolved]
  - Psoriasis [Recovering/Resolving]
  - Therapeutic response shortened [Not Recovered/Not Resolved]
  - Colon neoplasm [Not Recovered/Not Resolved]
  - Injection site pruritus [Unknown]

NARRATIVE: CASE EVENT DATE: 201706
